FAERS Safety Report 5354789-8 (Version None)
Quarter: 2007Q2

REPORT INFORMATION
  Report Type: 
  Country: None (occurrence: None)
  Receive Date: 20070612
  Receipt Date: 20070602
  Transmission Date: 20071010
  Serious: Yes (Hospitalization, Other)
  Sender: FDA-Public Use
  Company Number: FR-PFIZER INC-2007045374

PATIENT
  Age: 38 Year
  Sex: Female

DRUGS (3)
  1. LYRICA [Suspect]
     Indication: FIBROMYALGIA
     Dates: start: 20070401, end: 20070502
  2. FENTANYL [Concomitant]
  3. ALL OTHER THERAPEUTIC PRODUCTS [Concomitant]

REACTIONS (12)
  - AMNESIA [None]
  - DRUG WITHDRAWAL SYNDROME [None]
  - FEELING COLD [None]
  - HYPERHIDROSIS [None]
  - LIP SWELLING [None]
  - MUSCLE SPASMS [None]
  - NAUSEA [None]
  - PETIT MAL EPILEPSY [None]
  - SOMNOLENCE [None]
  - TREMOR [None]
  - URINARY RETENTION [None]
  - VERTIGO [None]
